FAERS Safety Report 13957512 (Version 1)
Quarter: 2017Q3

REPORT INFORMATION
  Report Type: Spontaneous
  Country: US (occurrence: US)
  Receive Date: 20170911
  Receipt Date: 20170911
  Transmission Date: 20171128
  Serious: No
  Sender: FDA-Public Use
  Company Number: US-ASTRAZENECA-2013SE93442

PATIENT
  Sex: Female

DRUGS (2)
  1. ZOMIG ZMT [Suspect]
     Active Substance: ZOLMITRIPTAN
     Dosage: 5.0MG UNKNOWN
     Route: 048
     Dates: start: 201108
  2. SEROQUEL [Suspect]
     Active Substance: QUETIAPINE FUMARATE
     Route: 048

REACTIONS (1)
  - Tinnitus [Unknown]
